FAERS Safety Report 11299361 (Version 1)
Quarter: 2015Q3

REPORT INFORMATION
  Report Type: Spontaneous
  Country: US (occurrence: US)
  Receive Date: 20150722
  Receipt Date: 20150722
  Transmission Date: 20151125
  Serious: No
  Sender: FDA-Public Use
  Company Number: US-ELI_LILLY_AND_COMPANY-US201210002156

PATIENT
  Sex: Female

DRUGS (2)
  1. NAPROXEN. [Concomitant]
     Active Substance: NAPROXEN
  2. EVISTA [Suspect]
     Active Substance: RALOXIFENE HYDROCHLORIDE
     Indication: OSTEOPOROSIS
     Dosage: 60 MG, QD
     Dates: end: 201209

REACTIONS (9)
  - Constipation [Recovering/Resolving]
  - Insomnia [Recovering/Resolving]
  - Cystitis [Unknown]
  - Palpitations [Recovering/Resolving]
  - Breast pain [Unknown]
  - Vaginal haemorrhage [Unknown]
  - Fatigue [Recovering/Resolving]
  - Cold sweat [Recovering/Resolving]
  - Drug withdrawal syndrome [Unknown]
